FAERS Safety Report 14732805 (Version 2)
Quarter: 2018Q2

REPORT INFORMATION
  Report Type: Spontaneous
  Country: US (occurrence: US)
  Receive Date: 20180409
  Receipt Date: 20180409
  Transmission Date: 20180711
  Serious: Yes (Other)
  Sender: FDA-Public Use
  Company Number: US-PFIZER INC-2018139234

PATIENT
  Age: 53 Year
  Sex: Female
  Weight: 72.57 kg

DRUGS (5)
  1. LYRICA [Interacting]
     Active Substance: PREGABALIN
     Dosage: 75 MG, 3X/DAY
     Route: 048
     Dates: start: 201801
  2. PRIMIDONE. [Interacting]
     Active Substance: PRIMIDONE
     Indication: SEIZURE
     Dosage: 500 MG, UNK
  3. PRIMIDONE. [Interacting]
     Active Substance: PRIMIDONE
     Dosage: 750 MG, 1X/DAY (250MG TAKE THREE TABLETS BY MOUTH AT BEDTIME)
  4. DILAUDID [Interacting]
     Active Substance: HYDROMORPHONE HYDROCHLORIDE
     Dosage: UNK
  5. LYRICA [Suspect]
     Active Substance: PREGABALIN
     Indication: FIBROMYALGIA
     Dosage: 75 MG, 2X/DAY
     Route: 048
     Dates: start: 2017

REACTIONS (10)
  - Head injury [Unknown]
  - Fall [Unknown]
  - Malaise [Unknown]
  - Drug interaction [Not Recovered/Not Resolved]
  - Circulatory collapse [Unknown]
  - Headache [Not Recovered/Not Resolved]
  - Seizure [Not Recovered/Not Resolved]
  - Hyperventilation [Unknown]
  - Condition aggravated [Not Recovered/Not Resolved]
  - False negative investigation result [Not Recovered/Not Resolved]

NARRATIVE: CASE EVENT DATE: 201802
